FAERS Safety Report 15621221 (Version 2)
Quarter: 2019Q1

REPORT INFORMATION
  Report Type: Spontaneous
  Country: US (occurrence: US)
  Receive Date: 20181115
  Receipt Date: 20190117
  Transmission Date: 20190417
  Serious: Yes (Hospitalization)
  Sender: FDA-Public Use
  Company Number: US-EISAI MEDICAL RESEARCH-EC-2018-047448

PATIENT
  Age: 16 Year
  Sex: Male

DRUGS (6)
  1. KEPPRA [Concomitant]
     Active Substance: LEVETIRACETAM
     Indication: EPILEPSY
     Dosage: UNKNOWN
     Route: 048
  2. FYCOMPA [Suspect]
     Active Substance: PERAMPANEL
     Route: 048
     Dates: start: 2018, end: 201811
  3. FYCOMPA [Suspect]
     Active Substance: PERAMPANEL
     Indication: GENERALISED TONIC-CLONIC SEIZURE
     Route: 048
     Dates: start: 201809, end: 2018
  4. FYCOMPA [Suspect]
     Active Substance: PERAMPANEL
     Route: 048
     Dates: start: 201811
  5. FYCOMPA [Suspect]
     Active Substance: PERAMPANEL
     Dosage: DOSE INCREASED (UP-TITRATED- DOSE UNKNOWN)
     Route: 048
     Dates: start: 2018, end: 2018
  6. DEPAKOTE [Concomitant]
     Active Substance: DIVALPROEX SODIUM
     Indication: EPILEPSY
     Dosage: UNKNOWN
     Route: 048

REACTIONS (4)
  - Suicide attempt [Recovered/Resolved]
  - Dysarthria [Recovered/Resolved]
  - Product dose omission [Recovered/Resolved]
  - Incorrect dosage administered [Recovered/Resolved]

NARRATIVE: CASE EVENT DATE: 2018
